FAERS Safety Report 7549072-6 (Version None)
Quarter: 2011Q2

REPORT INFORMATION
  Report Type: 
  Country: None (occurrence: None)
  Receive Date: 20110615
  Receipt Date: 20110606
  Transmission Date: 20111010
  Serious: Yes (Hospitalization)
  Sender: FDA-Public Use
  Company Number: FR-PFIZER INC-2010178234

PATIENT
  Age: 86 Year
  Sex: Male

DRUGS (11)
  1. INFLUENZA VACCINE [Concomitant]
     Dosage: UNK
     Dates: start: 20101124, end: 20101124
  2. ALFUZOSIN HCL [Concomitant]
     Dosage: UNK
     Dates: end: 20101116
  3. TRIMEBUTINE [Concomitant]
  4. FORLAX [Concomitant]
  5. PERMIXON [Concomitant]
     Dosage: UNK
  6. MODOPAR [Suspect]
     Indication: PARKINSON'S DISEASE
     Dosage: UNK
  7. ACTONEL [Concomitant]
     Dosage: UNK
  8. OROCAL [Concomitant]
  9. PREVISCAN [Suspect]
     Dosage: UNK
  10. LASIX [Concomitant]
     Dosage: UNK
     Dates: end: 20101109
  11. CORDARONE [Suspect]
     Dosage: 200 MG, UNK

REACTIONS (5)
  - LUNG DISORDER [None]
  - PNEUMONIA [None]
  - NEUTROPENIA [None]
  - AGRANULOCYTOSIS [None]
  - SEPTIC SHOCK [None]
